FAERS Safety Report 4564030-1 (Version None)
Quarter: 2005Q1

REPORT INFORMATION
  Report Type: 
  Country: None (occurrence: None)
  Receive Date: 20050128
  Receipt Date: 20040407
  Transmission Date: 20050727
  Serious: No
  Sender: FDA-Public Use
  Company Number: US-BRISTOL-MYERS SQUIBB COMPANY-12554358

PATIENT
  Age: 13 Year
  Sex: Female
  Weight: 80 kg

DRUGS (4)
  1. CEFZIL [Suspect]
     Indication: SINUSITIS
     Route: 048
     Dates: start: 20040406, end: 20040406
  2. BENADRYL [Concomitant]
  3. LORATADINE [Concomitant]
  4. ACETAMINOPHEN [Concomitant]

REACTIONS (6)
  - ABDOMINAL DISTENSION [None]
  - ABDOMINAL PAIN [None]
  - DRY MOUTH [None]
  - PYREXIA [None]
  - THIRST [None]
  - URINE OUTPUT DECREASED [None]
